FAERS Safety Report 16717040 (Version 3)
Quarter: 2021Q4

REPORT INFORMATION
  Report Type: Spontaneous
  Country: US (occurrence: US)
  Receive Date: 20190819
  Receipt Date: 20211201
  Transmission Date: 20220303
  Serious: Yes (Hospitalization, Other)
  Sender: FDA-Public Use
  Company Number: US-PFIZER INC-2019353511

PATIENT
  Age: 59 Year
  Sex: Female
  Weight: 75.75 kg

DRUGS (2)
  1. RAPAMUNE [Suspect]
     Active Substance: SIROLIMUS
     Indication: Renal transplant
     Dosage: 2 MG, 1X/DAY (IN THE MORNING)
     Route: 048
     Dates: start: 201206
  2. LOSARTAN [Concomitant]
     Active Substance: LOSARTAN
     Dosage: UNK

REACTIONS (8)
  - Bradycardia [Recovered/Resolved]
  - Polycythaemia [Recovering/Resolving]
  - Dizziness [Unknown]
  - Hypotension [Unknown]
  - Discomfort [Unknown]
  - Feeling abnormal [Unknown]
  - Poor quality product administered [Unknown]
  - Product complaint [Unknown]

NARRATIVE: CASE EVENT DATE: 20170101
